FAERS Safety Report 5416622-5 (Version None)
Quarter: 2007Q3

REPORT INFORMATION
  Report Type: 
  Country: None (occurrence: None)
  Receive Date: 20070814
  Receipt Date: 20070810
  Transmission Date: 20080115
  Serious: Yes (Death, Hospitalization)
  Sender: FDA-Public Use
  Company Number: 083-C5013-07041299

PATIENT
  Age: 43 Year
  Sex: Male
  Weight: 55 kg

DRUGS (7)
  1. CC-5013   (LENALIDOMIDE) [Suspect]
     Indication: AMYLOIDOSIS
     Dosage: SEE IMAGE
     Route: 048
     Dates: start: 20070319, end: 20070402
  2. CC-5013   (LENALIDOMIDE) [Suspect]
     Indication: AMYLOIDOSIS
     Dosage: SEE IMAGE
     Route: 048
     Dates: start: 20070417, end: 20070424
  3. DEXAMETHASONE TAB [Suspect]
     Indication: AMYLOIDOSIS
     Dates: start: 20070301, end: 20070401
  4. OMEPRAZOLE [Concomitant]
  5. CIPROFLOXACIN [Concomitant]
  6. ENOXAPARIN SODIUM [Concomitant]
  7. DARBEPOETIN ALPHA             (DARBEPOETIN ALFA) [Concomitant]

REACTIONS (4)
  - CARDIAC FAILURE [None]
  - CARDIOGENIC SHOCK [None]
  - RENAL FAILURE [None]
  - SUDDEN CARDIAC DEATH [None]
